FAERS Safety Report 5734768-9 (Version None)
Quarter: 2008Q2

REPORT INFORMATION
  Report Type: 
  Country: None (occurrence: None)
  Receive Date: 20080508
  Receipt Date: 20080428
  Transmission Date: 20081010
  Serious: Yes (Hospitalization)
  Sender: FDA-Public Use
  Company Number: 234015J08USA

PATIENT
  Age: 60 Year
  Sex: Female

DRUGS (1)
  1. REBIF [Suspect]
     Indication: MULTIPLE SCLEROSIS
     Dosage: 44 MCG, 3 IN 1 WEEKS, SUBCUTANEOUS
     Route: 058
     Dates: start: 20060928, end: 20080421

REACTIONS (7)
  - BLADDER DISORDER [None]
  - COGNITIVE DISORDER [None]
  - DIARRHOEA [None]
  - FAECES DISCOLOURED [None]
  - MEMORY IMPAIRMENT [None]
  - PYREXIA [None]
  - VOMITING [None]
